FAERS Safety Report 25045200 (Version 1)
Quarter: 2025Q1

REPORT INFORMATION
  Report Type: Spontaneous
  Country: JP (occurrence: JP)
  Receive Date: 20250306
  Receipt Date: 20250306
  Transmission Date: 20250409
  Serious: No
  Sender: MERCK SHARP & DOHME LLC
  Company Number: JP-MSD-M2025-03008

PATIENT
  Age: 9 Decade
  Sex: Female

DRUGS (1)
  1. LAGEVRIO [Suspect]
     Active Substance: MOLNUPIRAVIR
     Indication: COVID-19 treatment
     Dosage: DOSE DESCRIPTION : 800 MILLIGRAM, BID?DAILY DOSE : 1600 MILLIGRAM
     Route: 048
     Dates: start: 202501

REACTIONS (2)
  - Wrong technique in product usage process [Unknown]
  - Product use complaint [Unknown]
